FAERS Safety Report 4780390-0 (Version None)
Quarter: 2005Q3

REPORT INFORMATION
  Report Type: 
  Country: None (occurrence: None)
  Receive Date: 20050926
  Receipt Date: 20050914
  Transmission Date: 20060218
  Serious: Yes (Death, Other)
  Sender: FDA-Public Use
  Company Number: 12349

PATIENT
  Age: 73 Year

DRUGS (9)
  1. METHOTREXATE [Suspect]
     Indication: CENTRAL NERVOUS SYSTEM LYMPHOMA
     Dosage: 500 MG/M2 PER_CYCLE; IV
     Route: 042
  2. METHOTREXATE [Suspect]
     Indication: CENTRAL NERVOUS SYSTEM LYMPHOMA
     Dosage: 10 MG PER_CYCLE, IT
     Route: 038
  3. LEUCOVORIN [Suspect]
     Indication: PROPHYLAXIS
     Dosage: 120 MG OTH UNK
  4. VINCRISTINE [Suspect]
     Indication: CENTRAL NERVOUS SYSTEM LYMPHOMA
     Dosage: 1.4 MG/M2 PER_CYCLE; IV
     Route: 042
  5. ETOPOSIDE [Suspect]
     Indication: CENTRAL NERVOUS SYSTEM LYMPHOMA
     Dosage: 120 MG/M2 PER_CYCLE; IV
     Route: 042
  6. PIRARUBICIN [Suspect]
     Indication: CENTRAL NERVOUS SYSTEM LYMPHOMA
     Dosage: 25 MG/M2 PER_CYCLE; IV
     Route: 042
  7. PROCARBAZINE [Suspect]
     Indication: CENTRAL NERVOUS SYSTEM LYMPHOMA
     Dosage: 100 MG/M2 PER_CYCLE; PO
     Route: 048
  8. PREDNISONE [Suspect]
     Indication: LYMPHOMA
     Dosage: 1 PER_CYCLE; PO
     Route: 048
  9. CYCLOPHOSPHAMIDE [Suspect]
     Indication: LYMPHOMA
     Dosage: 650 MG/M2 PER_CYCLE; IV
     Route: 042

REACTIONS (1)
  - DEMENTIA [None]
